FAERS Safety Report 9556857 (Version 1)
Quarter: 2013Q3

REPORT INFORMATION
  Report Type: Spontaneous
  Country: US (occurrence: None)
  Receive Date: 20130724
  Receipt Date: 20130724
  Transmission Date: 20140515
  Serious: Yes (Other)
  Sender: FDA-Public Use
  Company Number: PHEH2013US009693

PATIENT
  Age: 46 Year
  Sex: Female

DRUGS (2)
  1. GILENYA (FINGOLIMOD) CAPSULE, 0.5MG [Suspect]
     Indication: MULTIPLE SCLEROSIS
     Route: 048
  2. AMPYRA (FAMPRIDINE) TABLET, 10MG [Suspect]
     Route: 048
     Dates: start: 20120628

REACTIONS (3)
  - Muscular weakness [None]
  - Mobility decreased [None]
  - Gait disturbance [None]
